FAERS Safety Report 15449811 (Version 4)
Quarter: 2019Q1

REPORT INFORMATION
  Report Type: Report from Study
  Country: JP (occurrence: JP)
  Receive Date: 20181001
  Receipt Date: 20190319
  Transmission Date: 20190417
  Serious: Yes (Hospitalization)
  Sender: FDA-Public Use
  Company Number: JP-ROCHE-2189727

PATIENT
  Age: 48 Year
  Sex: Female
  Weight: 65.9 kg

DRUGS (49)
  1. PACLITAXEL. [Suspect]
     Active Substance: PACLITAXEL
     Indication: OVARIAN CANCER
     Dosage: ON 10/SEP/2018, SHE RECIEVED LAST DOSE OF PACLITAXEL (222 MG) PRIOR TO SERIOUS ADVERSE EVENT.
     Route: 042
     Dates: start: 20180502
  2. OLOPATADINE HYDROCHLORIDE. [Concomitant]
     Active Substance: OLOPATADINE HYDROCHLORIDE
     Indication: PRURITUS
     Route: 065
     Dates: start: 20180509, end: 20180822
  3. TELEMINSOFT [Concomitant]
     Active Substance: BISACODYL
     Route: 065
     Dates: start: 20180824, end: 20180824
  4. ESLAX [Concomitant]
     Active Substance: ROCURONIUM BROMIDE
     Route: 042
     Dates: start: 20180824, end: 20180824
  5. DERMOSOL-G [Concomitant]
     Indication: PRURITUS
     Route: 061
     Dates: start: 20180509, end: 20180823
  6. OLOPATADINE HYDROCHLORIDE. [Concomitant]
     Active Substance: OLOPATADINE HYDROCHLORIDE
     Route: 065
     Dates: start: 20180911
  7. KENKETSU ALBUMIN [Concomitant]
     Route: 042
     Dates: start: 20180824, end: 20180824
  8. LOXOPROFEN SODIUM [Concomitant]
     Active Substance: LOXOPROFEN SODIUM
     Route: 065
     Dates: start: 20180825, end: 20181121
  9. RESTAMIN KOWA [Concomitant]
     Route: 065
     Dates: start: 20180910, end: 20180910
  10. CARBOPLATIN. [Suspect]
     Active Substance: CARBOPLATIN
     Indication: OVARIAN CANCER
     Dosage: ON 10/SEP/2018, SHE RECIEVED LAST DOSE OF CARBOPLATIN (636 MG) PRIOR TO SERIOUS ADVERSE EVENT.
     Route: 042
     Dates: start: 20180502
  11. MAGCOROL P [Concomitant]
     Active Substance: MAGNESIUM CITRATE
     Route: 065
     Dates: start: 20180822, end: 20180823
  12. EPHEDRINE HYDROCHLORIDE [Concomitant]
     Active Substance: EPHEDRINE HYDROCHLORIDE
     Route: 065
     Dates: start: 20180824, end: 20180824
  13. HEPARIN SODIUM. [Concomitant]
     Active Substance: HEPARIN SODIUM
     Route: 065
     Dates: start: 20180824, end: 20180824
  14. ACELIO [Concomitant]
     Active Substance: ACETAMINOPHEN
     Route: 065
     Dates: start: 20180923, end: 20180923
  15. IRRADIATED RED BLOOD CELLS-LEUKOCYTES REDUCED [Concomitant]
     Active Substance: HUMAN RED BLOOD CELL
     Indication: ANAEMIA
     Route: 065
     Dates: start: 20180824, end: 20180824
  16. HEPARIN CALCIUM [Concomitant]
     Active Substance: HEPARIN CALCIUM
     Route: 065
     Dates: start: 20180824, end: 20180824
  17. ALOXI [Concomitant]
     Active Substance: PALONOSETRON HYDROCHLORIDE
     Route: 065
     Dates: start: 20180910, end: 20180910
  18. PRIMPERAN [Concomitant]
     Active Substance: METOCLOPRAMIDE HYDROCHLORIDE
     Indication: NAUSEA
     Route: 065
     Dates: start: 20180503
  19. NEOSYNESIN KOWA [Concomitant]
     Route: 065
     Dates: start: 20180824, end: 20180824
  20. DIPRIVAN [Concomitant]
     Active Substance: PROPOFOL
     Route: 065
     Dates: start: 20180824, end: 20180824
  21. XYLOCAINE [Concomitant]
     Active Substance: LIDOCAINE HYDROCHLORIDE
     Route: 065
     Dates: start: 20180824, end: 20180824
  22. POPSCAINE [Concomitant]
     Active Substance: LEVOBUPIVACAINE HYDROCHLORIDE
     Route: 042
     Dates: start: 20180824, end: 20180827
  23. FRESH FROZEN PLASMA [Concomitant]
     Active Substance: HUMAN PLASMA
     Route: 065
     Dates: start: 20180824, end: 20180824
  24. BEVACIZUMAB. [Suspect]
     Active Substance: BEVACIZUMAB
     Indication: OVARIAN CANCER
     Dosage: ON 12/JUN/2018, SHE RECIEVED LAST DOSE OF BEVACIZUMAB (979.5 MG) PRIOR TO SERIOUS ADVERSE EVENT.
     Route: 042
     Dates: start: 20180502
  25. SENNOSIDE [Concomitant]
     Active Substance: SENNOSIDES
     Indication: CONSTIPATION
     Route: 065
     Dates: start: 20180823, end: 20180823
  26. SENNOSIDE [Concomitant]
     Active Substance: SENNOSIDES
     Route: 065
  27. CEFOTIAM HYDROCHLORIDE [Concomitant]
     Active Substance: CEFOTIAM HYDROCHLORIDE
     Route: 042
     Dates: start: 20180824, end: 20180828
  28. FENTANYL. [Concomitant]
     Active Substance: FENTANYL
     Route: 065
     Dates: start: 20180824, end: 20180827
  29. CALONAL [Concomitant]
     Active Substance: ACETAMINOPHEN
     Route: 065
     Dates: start: 20180827, end: 20180912
  30. TRAMAL [Concomitant]
     Active Substance: TRAMADOL
     Route: 065
     Dates: start: 20180828, end: 20180912
  31. DEXART [Concomitant]
     Active Substance: DEXAMETHASONE SODIUM PHOSPHATE
     Route: 042
     Dates: start: 20180910, end: 20180910
  32. TRAMCET [Concomitant]
     Active Substance: ACETAMINOPHEN\TRAMADOL
     Indication: STOMA SITE PAIN
     Route: 065
     Dates: start: 20180913, end: 20181121
  33. LOXOPROFEN [Concomitant]
     Active Substance: LOXOPROFEN
     Route: 065
     Dates: start: 20180330, end: 20180922
  34. REBAMIPIDE [Concomitant]
     Active Substance: REBAMIPIDE
     Route: 065
     Dates: start: 20180330, end: 20180922
  35. REBAMIPIDE [Concomitant]
     Active Substance: REBAMIPIDE
     Route: 065
     Dates: start: 20180825, end: 20181121
  36. TELEMINSOFT [Concomitant]
     Active Substance: BISACODYL
     Route: 065
     Dates: start: 20180830, end: 20180830
  37. LACTEC [Concomitant]
     Active Substance: CALCIUM CHLORIDE ANHYDROUS\POTASSIUM CHLORIDE\SODIUM CHLORIDE\SODIUM LACTATE
     Route: 065
     Dates: start: 20180824, end: 20180824
  38. VOLUVEN [Concomitant]
     Active Substance: HYDROXYETHYL STARCH 130/0.4
     Route: 065
     Dates: start: 20180824, end: 20180824
  39. REMIFENTANIL [Concomitant]
     Active Substance: REMIFENTANIL
     Route: 042
     Dates: start: 20180824, end: 20180824
  40. GASTER [Concomitant]
     Active Substance: FAMOTIDINE
     Indication: ENTERITIS
     Route: 065
     Dates: start: 20180824, end: 20180825
  41. GASTER [Concomitant]
     Active Substance: FAMOTIDINE
     Route: 065
     Dates: start: 20180923, end: 20180923
  42. ATEZOLIZUMAB. [Suspect]
     Active Substance: ATEZOLIZUMAB
     Indication: OVARIAN CANCER
     Dosage: ON 10/SEP/2018, SHE RECIEVED LAST DOSE OF ATEZOLIZUMAB PRIOR TO SERIOUS ADVERSE EVENT.
     Route: 042
     Dates: start: 20180502
  43. PHYSIO140 [Concomitant]
     Route: 065
     Dates: start: 20180824, end: 20180824
  44. GASTER [Concomitant]
     Active Substance: FAMOTIDINE
     Route: 065
     Dates: start: 20180910, end: 20180910
  45. PANTOL (PANTHENOL) [Concomitant]
     Route: 065
     Dates: start: 20180825, end: 20180827
  46. TAMCETON [Concomitant]
     Route: 065
     Dates: start: 20180913, end: 20180922
  47. MAGNESIUM OXIDE. [Concomitant]
     Active Substance: MAGNESIUM OXIDE
     Indication: CONSTIPATION
     Route: 065
     Dates: start: 20180501
  48. BROTIZOLAM [Concomitant]
     Active Substance: BROTIZOLAM
     Indication: INSOMNIA
     Route: 065
     Dates: start: 20180822, end: 20181108
  49. ACELIO [Concomitant]
     Active Substance: ACETAMINOPHEN
     Indication: ENTERITIS
     Route: 065
     Dates: start: 20180824, end: 20180827

REACTIONS (1)
  - Enteritis [Recovered/Resolved]

NARRATIVE: CASE EVENT DATE: 20180919
